FAERS Safety Report 26119699 (Version 1)
Quarter: 2025Q4

REPORT INFORMATION
  Report Type: Spontaneous
  Country: AU (occurrence: AU)
  Receive Date: 20251204
  Receipt Date: 20251204
  Transmission Date: 20260117
  Serious: Yes (Disabling, Other)
  Sender: AMGEN
  Company Number: AU-AMGEN-AUSSP2025236174

PATIENT
  Age: 58 Year
  Sex: Female

DRUGS (1)
  1. PROLIA [Suspect]
     Active Substance: DENOSUMAB
     Indication: Osteoporosis
     Dosage: UNK
     Route: 065

REACTIONS (3)
  - Pathological fracture [Recovered/Resolved]
  - Hypophosphataemic osteomalacia [Recovered/Resolved]
  - Phosphaturic mesenchymal tumour [Recovered/Resolved]
